FAERS Safety Report 15415058 (Version 1)
Quarter: 2018Q3

REPORT INFORMATION
  Report Type: Spontaneous
  Country: DE (occurrence: DE)
  Receive Date: 20180921
  Receipt Date: 20180921
  Transmission Date: 20181010
  Serious: Yes (Hospitalization, Other)
  Sender: FDA-Public Use
  Company Number: DE-MYLANLABS-2018M1069058

PATIENT
  Age: 81 Year
  Sex: Female
  Weight: 57.5 kg

DRUGS (3)
  1. CLONID OPHTAL [Concomitant]
     Active Substance: CLONIDINE HYDROCHLORIDE
     Indication: INTRAOCULAR PRESSURE INCREASED
     Dosage: 1 DF, (1 DF = 3 X DAILY 1 EYEDROP)
     Route: 065
  2. METOPROLOL. [Suspect]
     Active Substance: METOPROLOL
     Indication: PRODUCT USED FOR UNKNOWN INDICATION
     Dosage: 0.5 DF, QD (0.5 TAB)
     Route: 065
     Dates: start: 20180308
  3. ELIQUIS [Suspect]
     Active Substance: APIXABAN
     Indication: CEREBROVASCULAR ACCIDENT PROPHYLAXIS
     Dosage: (5 MG, BID), (10 MG, QD )
     Route: 048
     Dates: start: 20180308

REACTIONS (4)
  - Pain [Recovered/Resolved]
  - Dry mouth [Unknown]
  - Atrial fibrillation [Unknown]
  - Dysgeusia [Not Recovered/Not Resolved]
